FAERS Safety Report 9948780 (Version 1)
Quarter: 2014Q1

REPORT INFORMATION
  Report Type: Spontaneous
  Country: US (occurrence: None)
  Receive Date: 20140122
  Receipt Date: 20140122
  Transmission Date: 20141002
  Serious: Yes (Other)
  Sender: FDA-Public Use
  Company Number: AEGR000194

PATIENT
  Age: 65 Year
  Sex: Female
  Weight: 82.5 kg

DRUGS (11)
  1. JUXTAPID (LOMITAPIDE) CAPSULE, 5MG [Suspect]
     Indication: TYPE IIA HYPERLIPIDAEMIA
     Route: 048
     Dates: start: 201307, end: 201309
  2. HUMULIN (INSULIN HUMAN, INSULIN HUMAN INJECTION, ISOPHANE) [Concomitant]
  3. DIOVAN HCT (HYDROCHLOROTHIAZIDE, VALSARTAN) [Concomitant]
  4. COREG (CARVEDILOL) [Concomitant]
  5. METFORMIN HCL (METFORMIN HYDROCHLORIDE) [Concomitant]
  6. ZINC GLUCONATE (ZINC GLUCONATE) [Concomitant]
  7. B COMPLEX (VITAMIN B COMPLEX) [Concomitant]
  8. NAPROSYN (NAPROXEN) [Concomitant]
  9. CRANBERRY (CRANBERRY) [Concomitant]
  10. LORATADINE (LORATADINE) (LORATADINE) [Concomitant]
  11. CITALOPRAM (CITALOPRAM HYDROBROMIDE) [Concomitant]

REACTIONS (1)
  - Hepatic enzyme increased [None]
